FAERS Safety Report 5740576-5 (Version None)
Quarter: 2008Q2

REPORT INFORMATION
  Report Type: 
  Country: None (occurrence: None)
  Receive Date: 20080516
  Receipt Date: 20080506
  Transmission Date: 20081010
  Serious: Yes (Hospitalization, Congenital Anomaly)
  Sender: FDA-Public Use
  Company Number: A0626410A

PATIENT
  Sex: Female
  Weight: 2.2 kg

DRUGS (7)
  1. PAXIL CR [Suspect]
     Indication: DEPRESSION
     Dates: start: 20040721, end: 20050405
  2. TERBUTALINE SULFATE [Concomitant]
  3. VITAMIN TAB [Concomitant]
  4. ZITHROMAX [Concomitant]
     Dates: start: 20050201
  5. CHERATUSSIN AC [Concomitant]
     Dates: start: 20050201
  6. HYDROXYZINE PAMOATE [Concomitant]
     Dates: start: 20050301
  7. PROPOXYPHENE HCL AND ACETAMINOPHEN [Concomitant]
     Dates: start: 20050301

REACTIONS (50)
  - ANAEMIA NEONATAL [None]
  - ANXIETY [None]
  - AORTIC STENOSIS [None]
  - AORTIC VALVE INCOMPETENCE [None]
  - APNOEA [None]
  - ASTIGMATISM [None]
  - ATRIAL SEPTAL DEFECT [None]
  - CAMPTODACTYLY ACQUIRED [None]
  - CARDIAC MURMUR [None]
  - COGNITIVE DISORDER [None]
  - CYTOGENETIC ABNORMALITY [None]
  - DEVELOPMENTAL DELAY [None]
  - DRUG EXPOSURE DURING PREGNANCY [None]
  - DYSMORPHISM [None]
  - DYSPHAGIA [None]
  - DYSPNOEA [None]
  - ENCEPHALOPATHY [None]
  - FAILURE TO THRIVE [None]
  - FEEDING DISORDER NEONATAL [None]
  - FOETAL DISTRESS SYNDROME [None]
  - FOOT DEFORMITY [None]
  - GASTROOESOPHAGEAL REFLUX DISEASE [None]
  - GRAND MAL CONVULSION [None]
  - HYPONATRAEMIA [None]
  - HYPOTONIA [None]
  - HYPOXIA [None]
  - JOINT RANGE OF MOTION DECREASED [None]
  - LUNG HYPERINFLATION [None]
  - MICROCEPHALY [None]
  - MICROGNATHIA [None]
  - OPTIC NERVE DISORDER [None]
  - OXYGEN SATURATION DECREASED [None]
  - PAIN [None]
  - PERSISTENT FOETAL CIRCULATION [None]
  - PNEUMONIA RESPIRATORY SYNCYTIAL VIRAL [None]
  - PREMATURE BABY [None]
  - PSYCHOMOTOR SKILLS IMPAIRED [None]
  - PULMONARY VALVE STENOSIS [None]
  - RENAL SALT-WASTING SYNDROME [None]
  - RESPIRATORY ACIDOSIS [None]
  - RESPIRATORY DISTRESS [None]
  - RESPIRATORY FAILURE [None]
  - RESPIRATORY RATE DECREASED [None]
  - SCOLIOSIS [None]
  - SEPSIS [None]
  - SPEECH DISORDER DEVELOPMENTAL [None]
  - STARING [None]
  - VISION BLURRED [None]
  - VISUAL DISTURBANCE [None]
  - WILLIAMS SYNDROME [None]
